FAERS Safety Report 5456425-9 (Version None)
Quarter: 2007Q3

REPORT INFORMATION
  Report Type: 
  Country: None (occurrence: None)
  Receive Date: 20070918
  Receipt Date: 20070911
  Transmission Date: 20080115
  Serious: Yes (Death)
  Sender: FDA-Public Use
  Company Number: MW-GILEAD-2007-0011212

PATIENT
  Age: 36 Year
  Sex: Female
  Weight: 95 kg

DRUGS (9)
  1. EMTRICITABINE [Suspect]
     Indication: HIV INFECTION
     Route: 048
     Dates: start: 20060911, end: 20061229
  2. TENOFOVIR DISOPROXIL FUMARATE [Suspect]
     Indication: HIV INFECTION
     Route: 048
     Dates: start: 20060911, end: 20061229
  3. EFAVIRENZ [Suspect]
     Indication: HIV INFECTION
     Route: 048
     Dates: start: 20060911, end: 20061229
  4. MICROGYNON [Concomitant]
     Indication: CONTRACEPTION
     Route: 048
     Dates: start: 20050901, end: 20061229
  5. FERROUS SULFATE TAB [Concomitant]
     Indication: ANAEMIA
     Dates: start: 20060927, end: 20061004
  6. FERROUS SULFATE TAB [Concomitant]
     Dates: start: 20061130, end: 20061229
  7. ALBENDAZOLE [Concomitant]
     Indication: HELMINTHIC INFECTION
     Dates: start: 20060927, end: 20061130
  8. VITAMIN CAP [Concomitant]
  9. MAGNESIUM SULFATE [Concomitant]
     Dates: end: 20061102

REACTIONS (1)
  - SUBARACHNOID HAEMORRHAGE [None]
